FAERS Safety Report 7516216-1 (Version None)
Quarter: 2011Q2

REPORT INFORMATION
  Report Type: 
  Country: None (occurrence: None)
  Receive Date: 20110601
  Receipt Date: 20110525
  Transmission Date: 20111010
  Serious: Yes (Other)
  Sender: FDA-Public Use
  Company Number: GB-PFIZER INC-2011113670

PATIENT
  Age: 35 Year
  Sex: Male
  Weight: 74 kg

DRUGS (1)
  1. SILDENAFIL CITRATE [Suspect]
     Indication: ERECTILE DYSFUNCTION
     Dosage: 50 MG, UNK
     Route: 048
     Dates: start: 20100224

REACTIONS (2)
  - CHORIORETINOPATHY [None]
  - VISUAL IMPAIRMENT [None]
